FAERS Safety Report 4626772-9 (Version None)
Quarter: 2005Q2

REPORT INFORMATION
  Report Type: 
  Country: None (occurrence: None)
  Receive Date: 20050405
  Receipt Date: 20050329
  Transmission Date: 20051028
  Serious: Yes (Hospitalization)
  Sender: FDA-Public Use
  Company Number: PHNU2005DE01471

PATIENT
  Sex: Female

DRUGS (3)
  1. CRANOC (LICENSED, FUJISAWA DEUTSCHLAND) [Suspect]
     Indication: HYPERCHOLESTEROLAEMIA
     Dosage: 20 MG, QD
     Route: 048
     Dates: start: 20050201, end: 20050201
  2. DIURETICS [Concomitant]
  3. ST. JOHN'S WORT [Concomitant]

REACTIONS (4)
  - ANTINUCLEAR ANTIBODY POSITIVE [None]
  - DERMATOMYOSITIS [None]
  - ERYTHEMA [None]
  - MYALGIA [None]
